FAERS Safety Report 6048785-5 (Version None)
Quarter: 2009Q1

REPORT INFORMATION
  Report Type: 
  Country: None (occurrence: None)
  Receive Date: 20090123
  Receipt Date: 20090114
  Transmission Date: 20090719
  Serious: Yes (Hospitalization)
  Sender: FDA-Public Use
  Company Number: JP-MERCK-0901USA02743

PATIENT
  Age: 50 Year
  Sex: Female

DRUGS (7)
  1. PEPCID RPD [Suspect]
     Route: 048
     Dates: start: 20081001
  2. FLUOXETINE HYDROCHLORIDE [Concomitant]
     Route: 048
  3. IPD [Concomitant]
     Route: 048
  4. ZESULAN [Concomitant]
     Route: 048
  5. EMPYNASE [Concomitant]
     Route: 048
  6. CHLORDIAZEPOXIDE HYDROCHLORIDE [Concomitant]
     Route: 048
  7. RABEPRAZOLE SODIUM [Concomitant]
     Route: 048
     Dates: end: 20081201

REACTIONS (12)
  - ALANINE AMINOTRANSFERASE INCREASED [None]
  - ASPARTATE AMINOTRANSFERASE INCREASED [None]
  - BLOOD CHOLESTEROL INCREASED [None]
  - BLOOD GLUCOSE INCREASED [None]
  - DYSPNOEA [None]
  - FLUSHING [None]
  - GINGIVAL BLEEDING [None]
  - MENSTRUATION IRREGULAR [None]
  - PAIN IN EXTREMITY [None]
  - PERIPHERAL COLDNESS [None]
  - RED BLOOD CELL COUNT INCREASED [None]
  - TINNITUS [None]
